FAERS Safety Report 5414905-6 (Version None)
Quarter: 2007Q3

REPORT INFORMATION
  Report Type: 
  Country: None (occurrence: None)
  Receive Date: 20070813
  Receipt Date: 20070813
  Transmission Date: 20080115
  Serious: Yes (Life-Threatening, Hospitalization, Other)
  Sender: FDA-Public Use
  Company Number: None

PATIENT
  Age: 73 Year
  Sex: Male
  Weight: 84.4 kg

DRUGS (2)
  1. SPORANOX [Suspect]
     Indication: BLASTOMYCOSIS
     Dosage: 100MG (SPORONOX) BID ORAL
     Route: 048
     Dates: start: 20070101, end: 20070601
  2. VYTORIN [Suspect]
     Indication: HYPERCHOLESTEROLAEMIA
     Dosage: 10/80 VYTORIN  QDAY  ORAL
     Route: 048
     Dates: start: 20070501, end: 20070601

REACTIONS (7)
  - BUNDLE BRANCH BLOCK RIGHT [None]
  - DIALYSIS [None]
  - HAEMOGLOBIN DECREASED [None]
  - RENAL FAILURE ACUTE [None]
  - RHABDOMYOLYSIS [None]
  - SUPRAVENTRICULAR EXTRASYSTOLES [None]
  - ULTRASOUND ABDOMEN ABNORMAL [None]
